FAERS Safety Report 5353706-4 (Version None)
Quarter: 2007Q2

REPORT INFORMATION
  Report Type: 
  Country: None (occurrence: None)
  Receive Date: 20070612
  Receipt Date: 20070531
  Transmission Date: 20071010
  Serious: Yes (Other)
  Sender: FDA-Public Use
  Company Number: US-ASTRAZENECA-2006UW08392

PATIENT
  Age: 35 Year
  Sex: Male
  Weight: 75 kg

DRUGS (6)
  1. SEROQUEL [Suspect]
     Indication: BIPOLAR DISORDER
     Route: 048
     Dates: start: 20051101, end: 20060701
  2. GEODON [Concomitant]
     Dates: start: 20050101
  3. RISPERDAL [Concomitant]
     Dates: start: 20020101, end: 20040101
  4. ZYPREXA [Concomitant]
     Dates: start: 20040101, end: 20050101
  5. LITHIUM CARBONATE [Concomitant]
     Dates: start: 19920101, end: 19970101
  6. LITHIUM CARBONATE [Concomitant]

REACTIONS (1)
  - PANCREATITIS [None]
